FAERS Safety Report 5724885-1 (Version None)
Quarter: 2008Q2

REPORT INFORMATION
  Report Type: 
  Country: None (occurrence: None)
  Receive Date: 20080429
  Receipt Date: 20080417
  Transmission Date: 20081010
  Serious: Yes (Other)
  Sender: FDA-Public Use
  Company Number: 2008SP007268

PATIENT
  Age: 29 Year
  Sex: Female

DRUGS (4)
  1. DESLORATADINE [Suspect]
     Indication: HYPERSENSITIVITY
     Dosage: 5 MG; QD; PO, 5 MG; QD;
     Route: 048
     Dates: end: 20080415
  2. DESLORATADINE [Suspect]
     Indication: PRURITUS
     Dosage: 5 MG; QD; PO, 5 MG; QD;
     Route: 048
     Dates: end: 20080415
  3. DESLORATADINE [Suspect]
     Indication: HYPERSENSITIVITY
     Dosage: 5 MG; QD; PO, 5 MG; QD;
     Route: 048
     Dates: start: 20080319
  4. DESLORATADINE [Suspect]
     Indication: PRURITUS
     Dosage: 5 MG; QD; PO, 5 MG; QD;
     Route: 048
     Dates: start: 20080319

REACTIONS (7)
  - ABDOMINAL PAIN [None]
  - ALANINE AMINOTRANSFERASE INCREASED [None]
  - ASPARTATE AMINOTRANSFERASE INCREASED [None]
  - HYPERSENSITIVITY [None]
  - MIGRAINE [None]
  - PYREXIA [None]
  - SERUM FERRITIN INCREASED [None]
